FAERS Safety Report 18768634 (Version 1)
Quarter: 2021Q1

REPORT INFORMATION
  Report Type: Spontaneous
  Country: US (occurrence: US)
  Receive Date: 20210121
  Receipt Date: 20210121
  Transmission Date: 20210419
  Serious: Yes (Other)
  Sender: FDA-Public Use
  Company Number: US-SUN PHARMACEUTICAL INDUSTRIES LTD-2021R1-276447

PATIENT
  Age: 70 Year
  Sex: Male

DRUGS (4)
  1. MYCOPHENOLATE [Suspect]
     Active Substance: MYCOPHENOLIC ACID
     Indication: IMMUNOSUPPRESSION
     Dosage: 1000 MILLIGRAM, BID
     Route: 065
  2. TACROLIMUS. [Suspect]
     Active Substance: TACROLIMUS
     Indication: IMMUNOSUPPRESSION
     Dosage: 3 MILLIGRAM, BID
     Route: 065
  3. PREDNISONE. [Suspect]
     Active Substance: PREDNISONE
     Indication: IMMUNOSUPPRESSION
     Dosage: 15 MILLIGRAM, DAILY
     Route: 065
  4. GLUCOSAMINE CHONDOITIN COMPLEX [Suspect]
     Active Substance: CHONDROITIN SULFATE (BOVINE)\GLUCOSAMINE SULFATE
     Indication: SUPPLEMENTATION THERAPY
     Dosage: UNK
     Route: 065

REACTIONS (3)
  - Toxicity to various agents [Unknown]
  - Rheumatoid arthritis [Unknown]
  - Transaminases increased [Recovered/Resolved]
